FAERS Safety Report 6202919-8 (Version None)
Quarter: 2009Q2

REPORT INFORMATION
  Report Type: 
  Country: None (occurrence: None)
  Receive Date: 20090526
  Receipt Date: 20090513
  Transmission Date: 20091009
  Serious: Yes (Other)
  Sender: FDA-Public Use
  Company Number: FR-GENENTECH-283468

PATIENT
  Age: 77 Year
  Sex: Male

DRUGS (1)
  1. BEVACIZUMAB [Suspect]
     Indication: DRUG USE FOR UNKNOWN INDICATION
     Dosage: UNK
     Route: 065
     Dates: start: 20080124

REACTIONS (5)
  - ANAEMIA [None]
  - ATRIAL FIBRILLATION [None]
  - DIARRHOEA [None]
  - HAEMATURIA [None]
  - HYPOKALAEMIA [None]
